FAERS Safety Report 4437637-X (Version None)
Quarter: 2004Q3

REPORT INFORMATION
  Report Type: 
  Country: None (occurrence: None)
  Receive Date: 20040831
  Receipt Date: 20040708
  Transmission Date: 20050211
  Serious: Yes (Hospitalization, Other)
  Sender: FDA-Public Use
  Company Number: PHRM2004FR02317

PATIENT
  Age: 38 Year
  Sex: Female
  Weight: 71 kg

DRUGS (4)
  1. VOLTAREN [Suspect]
     Indication: SCIATICA
     Dosage: 75 MG, BID
     Route: 048
     Dates: start: 20040619, end: 20040709
  2. MYOLASTAN [Suspect]
     Dosage: 50 MG DAILY
     Route: 048
     Dates: start: 20040619
  3. LAMALINE [Concomitant]
  4. EUPANTOL [Concomitant]
     Dosage: 20 MG, QD
     Dates: start: 20040619, end: 20040709

REACTIONS (6)
  - APLASIA [None]
  - BONE MARROW DEPRESSION [None]
  - LEUKOPENIA [None]
  - LYMPHOPENIA [None]
  - NEUTROPENIA [None]
  - PHARYNGOLARYNGEAL PAIN [None]
